FAERS Safety Report 7126286-0 (Version None)
Quarter: 2010Q4

REPORT INFORMATION
  Report Type: 
  Country: None (occurrence: None)
  Receive Date: 20101129
  Receipt Date: 20101116
  Transmission Date: 20110411
  Serious: Yes (Other)
  Sender: FDA-Public Use
  Company Number: CA-ELI_LILLY_AND_COMPANY-CA201011006572

PATIENT
  Age: 71 Year
  Sex: Male

DRUGS (3)
  1. HUMALOG MIX 75/25 [Suspect]
     Dosage: 32 U, EACH MORNING
     Dates: start: 20100101
  2. HUMALOG MIX 75/25 [Suspect]
     Dosage: 25 U, EACH EVENING
  3. METFORMIN [Concomitant]

REACTIONS (2)
  - INJECTION SITE URTICARIA [None]
  - LUNG INFECTION [None]
